FAERS Safety Report 6904310-5 (Version None)
Quarter: 2010Q3

REPORT INFORMATION
  Report Type: 
  Country: None (occurrence: None)
  Receive Date: 20100804
  Receipt Date: 20090421
  Transmission Date: 20110219
  Serious: No
  Sender: FDA-Public Use
  Company Number: US-PFIZER INC-2009177399

PATIENT
  Sex: Male
  Weight: 77 kg

DRUGS (3)
  1. LYRICA [Suspect]
     Indication: PARAESTHESIA
     Dosage: UNK
     Route: 048
     Dates: start: 20081201, end: 20090201
  2. LYRICA [Suspect]
     Indication: PAIN IN EXTREMITY
  3. DRUG USED IN DIABETES [Concomitant]
     Dosage: UNK

REACTIONS (2)
  - HEADACHE [None]
  - OEDEMA PERIPHERAL [None]
